FAERS Safety Report 8333880-8 (Version None)
Quarter: 2012Q2

REPORT INFORMATION
  Report Type: 
  Country: None (occurrence: None)
  Receive Date: 20120503
  Receipt Date: 20120424
  Transmission Date: 20120825
  Serious: Yes (Other)
  Sender: FDA-Public Use
  Company Number: AR-ASTRAZENECA-2012SE26841

PATIENT

DRUGS (3)
  1. PROPOFOL [Concomitant]
     Indication: SEDATIVE THERAPY
  2. ROPIVACAINE HYDROCHLORIDE [Suspect]
     Route: 053
  3. MIDAZOLAM [Concomitant]
     Indication: SEDATIVE THERAPY

REACTIONS (1)
  - HORNER'S SYNDROME [None]
